FAERS Safety Report 5472102-2 (Version None)
Quarter: 2007Q3

REPORT INFORMATION
  Report Type: 
  Country: None (occurrence: None)
  Receive Date: 20070928
  Receipt Date: 20070920
  Transmission Date: 20080115
  Serious: Yes (Other)
  Sender: FDA-Public Use
  Company Number: IE-ABBOTT-07P-229-0418031-00

PATIENT
  Age: 21 Year
  Sex: Male

DRUGS (2)
  1. KLACID [Suspect]
     Indication: LOWER RESPIRATORY TRACT INFECTION
     Route: 048
  2. KLACID [Suspect]
     Indication: PHARYNGOLARYNGEAL PAIN

REACTIONS (4)
  - FEELING COLD [None]
  - FEELING HOT [None]
  - HALLUCINATION [None]
  - PYREXIA [None]
